FAERS Safety Report 18659642 (Version 1)
Quarter: 2020Q4

REPORT INFORMATION
  Report Type: Spontaneous
  Country: US (occurrence: US)
  Receive Date: 20201224
  Receipt Date: 20201224
  Transmission Date: 20210114
  Serious: Yes (Hospitalization, Other)
  Sender: FDA-Public Use
  Company Number: NVSC2020US332500

PATIENT
  Age: 83 Year
  Sex: Female
  Weight: 72.58 kg

DRUGS (5)
  1. OFEV [Suspect]
     Active Substance: NINTEDANIB
     Indication: IDIOPATHIC PULMONARY FIBROSIS
     Dosage: 300 MG, BID
     Route: 048
     Dates: start: 20190515
  2. DILTIAZEM. [Concomitant]
     Active Substance: DILTIAZEM
     Indication: PRODUCT USED FOR UNKNOWN INDICATION
     Dosage: UNK
     Route: 065
  3. ZOFRAN [Suspect]
     Active Substance: ONDANSETRON HYDROCHLORIDE
     Indication: NAUSEA
     Dosage: UNK
     Route: 065
  4. OPSUMIT [Suspect]
     Active Substance: MACITENTAN
     Indication: PULMONARY HYPERTENSION
     Dosage: 10 MG, QD
     Route: 048
  5. OFEV [Suspect]
     Active Substance: NINTEDANIB
     Dosage: 200 MG, QD
     Route: 048
     Dates: start: 20190522

REACTIONS (20)
  - Respiratory failure [Unknown]
  - Asthenia [Unknown]
  - Constipation [Unknown]
  - Cardiac failure [Unknown]
  - Oedema [Unknown]
  - Dyspnoea [Unknown]
  - Productive cough [Unknown]
  - Nasal congestion [Unknown]
  - Swelling [Unknown]
  - Pulmonary hypertension [Unknown]
  - Cardiomegaly [Unknown]
  - Vomiting [Not Recovered/Not Resolved]
  - Nausea [Not Recovered/Not Resolved]
  - Fluid retention [Unknown]
  - Flushing [Unknown]
  - Diarrhoea [Unknown]
  - Pneumonia [Unknown]
  - Hypotension [Unknown]
  - Upper-airway cough syndrome [Unknown]
  - Somnolence [Unknown]

NARRATIVE: CASE EVENT DATE: 201905
